FAERS Safety Report 16754388 (Version 21)
Quarter: 2022Q1

REPORT INFORMATION
  Report Type: Spontaneous
  Country: US (occurrence: US)
  Receive Date: 20190829
  Receipt Date: 20220310
  Transmission Date: 20220423
  Serious: Yes (Hospitalization, Other)
  Sender: FDA-Public Use
  Company Number: US-PFIZER INC-2019368599

PATIENT
  Age: 88 Year
  Sex: Female

DRUGS (6)
  1. NORVASC [Suspect]
     Active Substance: AMLODIPINE BESYLATE
     Indication: Blood pressure abnormal
     Dosage: 5 MG, 2X/DAY
  2. LIPITOR [Suspect]
     Active Substance: ATORVASTATIN CALCIUM
     Dosage: 40 MG, DAILY
  3. XALATAN [Suspect]
     Active Substance: LATANOPROST
     Indication: Glaucoma
     Dosage: 1 GTT, DAILY
     Route: 047
  4. XALATAN [Suspect]
     Active Substance: LATANOPROST
     Dosage: 1 GTT, UNK
  5. XALATAN [Suspect]
     Active Substance: LATANOPROST
     Dosage: UNK, ALTERNATE DAY
  6. NITROSTAT [Suspect]
     Active Substance: NITROGLYCERIN
     Dosage: UNK, AS NEEDED

REACTIONS (25)
  - Fall [Unknown]
  - Drug hypersensitivity [Unknown]
  - Brain neoplasm [Unknown]
  - Haemorrhage [Unknown]
  - Seizure [Unknown]
  - Sinusitis [Unknown]
  - Cerebrovascular accident [Unknown]
  - Choking [Unknown]
  - Balance disorder [Unknown]
  - Intentional product misuse [Unknown]
  - Stent malfunction [Unknown]
  - Hypoacusis [Not Recovered/Not Resolved]
  - Tremor [Unknown]
  - Malaise [Unknown]
  - Back injury [Unknown]
  - Sinus disorder [Unknown]
  - Dizziness [Unknown]
  - Oral pain [Unknown]
  - Migraine [Unknown]
  - Viral infection [Unknown]
  - Vertigo [Unknown]
  - Nasal congestion [Unknown]
  - Nasal discomfort [Unknown]
  - Head discomfort [Unknown]
  - Viral sinusitis [Unknown]
